FAERS Safety Report 4561661-X (Version None)
Quarter: 2005Q1

REPORT INFORMATION
  Report Type: 
  Country: None (occurrence: None)
  Receive Date: 20050124
  Receipt Date: 20050110
  Transmission Date: 20050727
  Serious: Yes (Other)
  Sender: FDA-Public Use
  Company Number: 2005011189

PATIENT
  Age: 67 Year
  Sex: Female
  Weight: 102.0593 kg

DRUGS (8)
  1. CELEBREX [Suspect]
     Indication: ARTHRITIS
     Dosage: 200 MG (200 MG, 1 IN 1 D), ORAL
     Route: 048
     Dates: start: 20030101, end: 20040101
  2. FUROSEMIDE (FUROSEMIDE) [Concomitant]
  3. UDRAMIL (TRANDOLAPRIL, VERAPAMIL HYDROCHLORIDE) [Concomitant]
  4. PIOGLITAZONE HCL [Concomitant]
  5. ATORVASTATIN (ATORVASTATIN) [Concomitant]
  6. DOXAZOSIN MESYLATE [Concomitant]
  7. FISH OIL (FISH OIL) [Concomitant]
  8. VITAMINS (VITAMINS) [Concomitant]

REACTIONS (5)
  - ANXIETY [None]
  - ARTHRALGIA [None]
  - BLOOD PRESSURE INCREASED [None]
  - CYSTITIS [None]
  - HEART RATE INCREASED [None]
